FAERS Safety Report 5165517-3 (Version None)
Quarter: 2006Q4

REPORT INFORMATION
  Report Type: 
  Country: None (occurrence: None)
  Receive Date: 20061128
  Receipt Date: 20061106
  Transmission Date: 20070319
  Serious: Yes (Life-Threatening, Hospitalization)
  Sender: FDA-Public Use
  Company Number: 30564

PATIENT
  Age: 1 Month
  Sex: Male

DRUGS (3)
  1. FLECAINIDE ACETATE [Suspect]
     Indication: NODAL ARRHYTHMIA
     Dosage: 5 MG/KG
  2. SOTALOL HYDROCHLORIDE [Suspect]
     Dosage: 4 MG/KG
  3. NADOLOL [Suspect]
     Dosage: 2.5 MG/KG

REACTIONS (12)
  - BUNDLE BRANCH BLOCK RIGHT [None]
  - CYANOSIS [None]
  - DRUG INEFFECTIVE [None]
  - EJECTION FRACTION DECREASED [None]
  - ELECTROCARDIOGRAM QRS COMPLEX PROLONGED [None]
  - ELECTROCARDIOGRAM QT PROLONGED [None]
  - HYPOTONIA [None]
  - LOSS OF CONSCIOUSNESS [None]
  - MITRAL VALVE INCOMPETENCE [None]
  - PULSE ABSENT [None]
  - SYNCOPE [None]
  - TACHYCARDIA [None]
